FAERS Safety Report 9972987 (Version 2)
Quarter: 2014Q1

REPORT INFORMATION
  Report Type: Spontaneous
  Country: US (occurrence: US)
  Receive Date: 20140306
  Receipt Date: 20140321
  Transmission Date: 20141002
  Serious: No
  Sender: FDA-Public Use
  Company Number: US-PFIZER INC-2014062322

PATIENT
  Age: 54 Year
  Sex: Female
  Weight: 72.56 kg

DRUGS (8)
  1. LYRICA [Suspect]
     Indication: NERVE COMPRESSION
     Dosage: 50 MG, 3X/DAY
     Route: 048
  2. LYRICA [Suspect]
     Indication: NERVOUS SYSTEM DISORDER
     Dosage: 50 MG, 2X/DAY
     Route: 048
     Dates: start: 201403
  3. ENABLEX [Concomitant]
     Indication: INCONTINENCE
     Dosage: UNK
  4. ALLEGRA-D [Concomitant]
     Indication: HYPERSENSITIVITY
     Dosage: UNK
  5. HYDROCHLOROTHIAZIDE [Concomitant]
     Dosage: UNK
  6. SINGULAIR [Concomitant]
     Indication: ASTHMA
     Dosage: UNK
  7. OMEPRAZOLE [Concomitant]
     Dosage: UNK
  8. ESTRADIOL [Concomitant]
     Dosage: UNK

REACTIONS (1)
  - Pain [Unknown]
